FAERS Safety Report 7892955 (Version 4)
Quarter: 2014Q1

REPORT INFORMATION
  Report Type: Spontaneous
  Country: US (occurrence: US)
  Receive Date: 20110411
  Receipt Date: 20140116
  Transmission Date: 20141002
  Serious: Yes (Other)
  Sender: FDA-Public Use
  Company Number: US-BAYER-2011-029353

PATIENT
  Age: 27 Year
  Sex: Female
  Weight: 82.09 kg

DRUGS (8)
  1. OCELLA [Suspect]
     Indication: POLYCYSTIC OVARIES
     Dosage: UNK
     Dates: start: 200809, end: 201107
  2. YASMIN [Suspect]
     Indication: POLYCYSTIC OVARIES
     Dosage: UNK
     Dates: start: 200610, end: 200808
  3. SYNTHROID [Concomitant]
     Indication: THYROID DISORDER
     Dosage: UNK
     Dates: start: 2005
  4. FISH OIL [Concomitant]
  5. VITAMIN D [Concomitant]
  6. MODIFAST [Concomitant]
  7. BETAMETHASONE VALERATE [Concomitant]
     Dosage: 0.1 %, UNK
     Dates: start: 20090905
  8. TREXIMET [Concomitant]
     Dosage: UNK
     Dates: start: 20090920

REACTIONS (4)
  - Cholecystitis chronic [Unknown]
  - Pain [Unknown]
  - Injury [Unknown]
  - Hepatic enzyme increased [Unknown]
